FAERS Safety Report 7867812-3 (Version None)
Quarter: 2011Q4

REPORT INFORMATION
  Report Type: 
  Country: None (occurrence: None)
  Receive Date: 20111028
  Receipt Date: 20111021
  Transmission Date: 20120403
  Serious: Yes (Hospitalization)
  Sender: FDA-Public Use
  Company Number: US-US-EMD SERONO, INC.-7091069

PATIENT
  Sex: Female

DRUGS (3)
  1. NEURONTIN [Concomitant]
  2. REBIF [Suspect]
     Indication: SECONDARY PROGRESSIVE MULTIPLE SCLEROSIS
     Route: 058
     Dates: start: 20110718
  3. PSYCHIATRIC MEDICATIONS [Concomitant]
     Indication: DEPRESSION

REACTIONS (5)
  - TREMOR [None]
  - MULTIPLE SCLEROSIS RELAPSE [None]
  - NEURALGIA [None]
  - ANXIETY [None]
  - DIARRHOEA [None]
